FAERS Safety Report 8812481 (Version 2)
Quarter: 2012Q4

REPORT INFORMATION
  Report Type: Report from Study
  Country: JP (occurrence: JP)
  Receive Date: 20120927
  Receipt Date: 20121012
  Transmission Date: 20130627
  Serious: Yes (Hospitalization, Other)
  Sender: FDA-Public Use
  Company Number: JP-VERTEX PHARMACEUTICAL INC.-2012-021799

PATIENT
  Age: 65 Year
  Sex: Male

DRUGS (11)
  1. VX-950 [Suspect]
     Indication: HEPATITIS C
     Dosage: 2250 mg, qd
     Route: 048
     Dates: start: 20120912, end: 20120914
  2. PEGINTRON                          /01543001/ [Suspect]
     Indication: HEPATITIS C
     Dosage: UNK
     Route: 058
     Dates: start: 20120912, end: 20120912
  3. REBETOL [Suspect]
     Indication: HEPATITIS C
     Dosage: 800 mg, qd
     Route: 048
     Dates: start: 20120912, end: 20120914
  4. URDESTON [Concomitant]
     Dosage: 600 mg, qd
     Route: 048
  5. GLACTIV [Concomitant]
     Dosage: 50 mg, qd
     Route: 048
     Dates: end: 20120914
  6. AMARYL [Concomitant]
     Dosage: 1 mg, qd
     Route: 048
     Dates: end: 20120914
  7. ACTOS [Concomitant]
     Dosage: 15 mg, qd
     Route: 048
     Dates: end: 20120914
  8. CARDENALIN [Concomitant]
     Dosage: 2 mg, qd
     Route: 048
  9. DIOVAN [Concomitant]
     Dosage: 160 mg, qd
     Route: 048
     Dates: end: 20120924
  10. CONIEL [Concomitant]
     Dosage: 8 mg, qd
     Route: 048
  11. ZYLORIC [Concomitant]
     Dosage: 200 mg, qd
     Route: 048
     Dates: start: 20120808

REACTIONS (2)
  - Renal disorder [Not Recovered/Not Resolved]
  - Renal impairment [Not Recovered/Not Resolved]
